FAERS Safety Report 4641227-3 (Version None)
Quarter: 2005Q2

REPORT INFORMATION
  Report Type: 
  Country: None (occurrence: None)
  Receive Date: 20050419
  Receipt Date: 20050419
  Transmission Date: 20051028
  Serious: Yes (Hospitalization)
  Sender: FDA-Public Use
  Company Number: None

PATIENT
  Age: 57 Year
  Sex: Male
  Weight: 69.6 kg

DRUGS (13)
  1. LITHIUM CARBONATE [Suspect]
     Indication: BIPOLAR DISORDER
     Dosage: 1 CAPSULE THREE TIMES A DAY
     Dates: start: 19960901, end: 20050318
  2. ASPIRIN [Concomitant]
  3. CIPROFLOXACIN [Concomitant]
  4. CLINDAMYCIN [Concomitant]
  5. CLOPIDOGREL BISULFATE [Concomitant]
  6. VICODIN [Concomitant]
  7. HYDROCHLOROTHIAZIDE [Concomitant]
  8. LEVOTHYROXINE SODIUM [Concomitant]
  9. LISINOPRIL [Concomitant]
  10. METFORMIN HCL [Concomitant]
  11. METOPROLOL TARTRATE [Concomitant]
  12. OMEPRAZOLE [Concomitant]
  13. SPIRONOLACTONE [Concomitant]

REACTIONS (6)
  - ACUTE MYOCARDIAL INFARCTION [None]
  - DEHYDRATION [None]
  - DRUG INTERACTION [None]
  - DRUG TOXICITY [None]
  - HYPOTHYROIDISM [None]
  - RENAL IMPAIRMENT [None]
